FAERS Safety Report 6129739-7 (Version None)
Quarter: 2009Q1

REPORT INFORMATION
  Report Type: 
  Country: None (occurrence: None)
  Receive Date: 20090324
  Receipt Date: 20090318
  Transmission Date: 20090719
  Serious: Yes (Hospitalization)
  Sender: FDA-Public Use
  Company Number: B0535212A

PATIENT
  Age: 69 Year
  Sex: Male

DRUGS (19)
  1. SERETIDE [Suspect]
     Indication: ASTHMA
     Route: 055
  2. VENTOLIN [Suspect]
     Indication: ASTHMA
     Dosage: 100MCG AS REQUIRED
     Route: 055
  3. AMLODIPINE [Suspect]
     Dosage: 5MG PER DAY
     Route: 065
  4. ASPIRIN [Suspect]
     Indication: DRUG USE FOR UNKNOWN INDICATION
     Dosage: 75MG PER DAY
     Route: 065
  5. ACETAMINOPHEN W/ CODEINE [Suspect]
     Indication: ARTHRITIS
     Dosage: 500MG AS REQUIRED
     Route: 065
  6. COD LIVER OIL [Suspect]
     Indication: ARTHRITIS
     Dosage: 2CAP PER DAY
     Route: 065
  7. CREON [Suspect]
     Indication: PANCREATIC DISORDER
     Route: 065
  8. FRUSEMIDE [Suspect]
     Indication: DRUG USE FOR UNKNOWN INDICATION
     Dosage: 40MG PER DAY
     Route: 065
  9. GLUCOSAMINE SULPHATE [Suspect]
     Indication: ARTHRITIS
     Route: 065
  10. GLYCOSIDE [Suspect]
     Dosage: 80MG PER DAY
     Route: 065
  11. NITROGLYCERIN [Suspect]
     Indication: DRUG USE FOR UNKNOWN INDICATION
     Dosage: 5MG AS REQUIRED
     Route: 062
  12. OMEPRAZOLE [Suspect]
     Indication: DRUG USE FOR UNKNOWN INDICATION
     Dosage: 20MG TWICE PER DAY
     Route: 065
  13. PARACETAMOL [Suspect]
     Indication: ARTHRITIS
     Dosage: 500MG AS REQUIRED
     Route: 065
  14. MEPERIDINE HCL [Suspect]
     Indication: PANCREATIC DISORDER
     Dosage: 50MG AS REQUIRED
     Route: 065
  15. QUININE SULPHATE [Suspect]
     Indication: DRUG USE FOR UNKNOWN INDICATION
     Dosage: 300MG AS REQUIRED
     Route: 065
  16. RAMIPRIL [Suspect]
     Dosage: 2.5MG PER DAY
     Route: 065
  17. SIMVASTATIN [Suspect]
     Indication: BLOOD CHOLESTEROL INCREASED
     Dosage: 20MG PER DAY
     Route: 065
  18. WARFARIN SODIUM [Suspect]
     Indication: DRUG USE FOR UNKNOWN INDICATION
     Dosage: 2.5MG PER DAY
     Route: 065
  19. CARBOCISTEINE [Concomitant]

REACTIONS (5)
  - COUGH [None]
  - DYSPNOEA [None]
  - ENTEROCOLITIS [None]
  - LOWER RESPIRATORY TRACT INFECTION [None]
  - PNEUMONIA PNEUMOCOCCAL [None]
